FAERS Safety Report 8132015-4 (Version None)
Quarter: 2012Q1

REPORT INFORMATION
  Report Type: 
  Country: None (occurrence: None)
  Receive Date: 20120213
  Receipt Date: 20120201
  Transmission Date: 20120608
  Serious: Yes (Death, Other)
  Sender: FDA-Public Use
  Company Number: US-NOVOPROD-344431

PATIENT
  Sex: Male

DRUGS (2)
  1. FEIBA [Suspect]
     Indication: ACQUIRED HAEMOPHILIA
     Dosage: SINGLE (ONCE)
     Route: 042
     Dates: start: 20110101, end: 20110101
  2. NOVOSEVEN [Suspect]
     Indication: ACQUIRED HAEMOPHILIA
     Dosage: UNKNOWN, SEVERAL DOSES
     Route: 042
     Dates: start: 20110101, end: 20110101

REACTIONS (3)
  - MYOCARDIAL INFARCTION [None]
  - DRUG INEFFECTIVE [None]
  - HAEMORRHAGE [None]
